FAERS Safety Report 5275478-4 (Version None)
Quarter: 2007Q1

REPORT INFORMATION
  Report Type: 
  Country: None (occurrence: None)
  Receive Date: 20070326
  Receipt Date: 20070316
  Transmission Date: 20070707
  Serious: Yes (Hospitalization)
  Sender: FDA-Public Use
  Company Number: GB-ROCHE-487739

PATIENT
  Age: 61 Year
  Sex: Female
  Weight: 59 kg

DRUGS (6)
  1. CAPECITABINE [Suspect]
     Dosage: FROM DAYS ONE TO FOURTEEN OF A THREE WEEK CYCLE.  ACTUAL DOSE = 1200 MG.
     Route: 048
     Dates: start: 20041217, end: 20050121
  2. GEMCITABINE [Suspect]
     Dosage: GIVEN ON DAYS ONE AND EIGHT OF A THREE WEEK CYCLE.  GIVEN AS 50 MIN INFUSION.
     Route: 042
     Dates: start: 20041217, end: 20050126
  3. BUSCOPAN [Concomitant]
     Route: 048
     Dates: start: 20050121
  4. MST [Concomitant]
     Route: 048
     Dates: start: 20041015
  5. ORAMORPH SR [Concomitant]
     Dosage: AS REQUIRED.
     Route: 048
     Dates: start: 20041015
  6. OMEPRAZOLE [Concomitant]
     Route: 048

REACTIONS (6)
  - ABDOMINAL PAIN [None]
  - BACTERIAL INFECTION [None]
  - CANDIDIASIS [None]
  - CELLULITIS [None]
  - DISEASE PROGRESSION [None]
  - WOUND SECRETION [None]
